FAERS Safety Report 13406865 (Version 2)
Quarter: 2017Q2

REPORT INFORMATION
  Report Type: Spontaneous
  Country: JP (occurrence: JP)
  Receive Date: 20170405
  Receipt Date: 20170414
  Transmission Date: 20170830
  Serious: Yes (Other)
  Sender: FDA-Public Use
  Company Number: JP-PFIZER INC-2017094565

PATIENT
  Age: 90 Year
  Sex: Female

DRUGS (5)
  1. CELECOX [Suspect]
     Active Substance: CELECOXIB
     Dosage: 400 MG, UNK
     Route: 048
  2. CIMETIDINE [Suspect]
     Active Substance: CIMETIDINE
     Dosage: UNK
     Route: 048
  3. VIVIANT [Suspect]
     Active Substance: BAZEDOXIFENE
     Dosage: UNK
     Route: 048
  4. CELECOX [Suspect]
     Active Substance: CELECOXIB
     Indication: PAIN
     Dosage: 200 MG, 1X/DAY
     Route: 048
     Dates: start: 20170225, end: 20170301
  5. EDIROL [Suspect]
     Active Substance: ELDECALCITOL
     Dosage: UNK
     Route: 048

REACTIONS (2)
  - Chromaturia [Recovered/Resolved]
  - Cystitis haemorrhagic [Unknown]

NARRATIVE: CASE EVENT DATE: 20170226
